FAERS Safety Report 5216426-2 (Version None)
Quarter: 2007Q1

REPORT INFORMATION
  Report Type: 
  Country: None (occurrence: None)
  Receive Date: 20061127
  Receipt Date: 20051017
  Transmission Date: 20070707
  Serious: Yes (Other)
  Sender: FDA-Public Use
  Company Number: HQWYE140121OCT05

PATIENT
  Age: 51 Year
  Sex: Female

DRUGS (1)
  1. INDERAL [Suspect]

REACTIONS (1)
  - HALLUCINATION, VISUAL [None]
